FAERS Safety Report 5623269-4 (Version None)
Quarter: 2008Q1

REPORT INFORMATION
  Report Type: 
  Country: None (occurrence: None)
  Receive Date: 20080212
  Receipt Date: 20080130
  Transmission Date: 20080703
  Serious: Yes (Other)
  Sender: FDA-Public Use
  Company Number: US-PFIZER INC-2008009843

PATIENT
  Sex: Female
  Weight: 68.181 kg

DRUGS (3)
  1. CHANTIX [Suspect]
     Indication: SMOKING CESSATION THERAPY
  2. VERAPAMIL [Concomitant]
     Indication: HYPERTENSION
  3. SIMVASTATIN [Concomitant]
     Indication: BLOOD CHOLESTEROL INCREASED

REACTIONS (6)
  - BLOOD ALCOHOL INCREASED [None]
  - DRUG ADMINISTRATION ERROR [None]
  - INSOMNIA [None]
  - MASS EXCISION [None]
  - NAUSEA [None]
  - RED BLOOD CELL COUNT INCREASED [None]
